FAERS Safety Report 9554306 (Version 1)
Quarter: 2013Q3

REPORT INFORMATION
  Report Type: Spontaneous
  Country: US (occurrence: US)
  Receive Date: 20130925
  Receipt Date: 20130925
  Transmission Date: 20140515
  Serious: Yes (Other)
  Sender: FDA-Public Use
  Company Number: US-MYLANLABS-2013S1016163

PATIENT
  Age: 57 Year
  Sex: Female

DRUGS (2)
  1. ALENDRONATE SODIUM TABLETS USP [Suspect]
     Indication: OSTEOPOROSIS
     Route: 048
     Dates: start: 200804, end: 201104
  2. FOSAMAX [Suspect]
     Indication: OSTEOPOROSIS
     Route: 048
     Dates: start: 200406, end: 200803

REACTIONS (2)
  - Femur fracture [Not Recovered/Not Resolved]
  - Low turnover osteopathy [Not Recovered/Not Resolved]
